FAERS Safety Report 24013242 (Version 2)
Quarter: 2024Q2

REPORT INFORMATION
  Report Type: Spontaneous
  Country: CH (occurrence: CH)
  Receive Date: 20240626
  Receipt Date: 20240628
  Transmission Date: 20240716
  Serious: Yes (Hospitalization)
  Sender: FDA-Public Use
  Company Number: CH-AstraZeneca-2024A146253

PATIENT

DRUGS (10)
  1. GOSERELIN [Suspect]
     Active Substance: GOSERELIN
     Indication: Prostate cancer
     Dosage: 1 DOSAGE FORM EVERY 3 MONTH(S) ZOLADEX (GOSERELIN) S.C. EVERY 3 MONTHS, FIRST 10.08.2023 (ABROAD)...
     Route: 058
     Dates: start: 20230810
  2. ZOLADEX [Suspect]
     Active Substance: GOSERELIN ACETATE
     Indication: Prostate cancer
     Dosage: UNK
     Route: 065
  3. CASODEX [Suspect]
     Active Substance: BICALUTAMIDE
     Indication: Product used for unknown indication
     Dosage: 50 MILLIGRAM, QD (50 MILLIGRAM EVERY 1 DAY(S))
     Route: 048
     Dates: start: 20231107
  4. DOCETAXEL [Suspect]
     Active Substance: DOCETAXEL\DOCETAXEL ANHYDROUS
     Indication: Prostate cancer metastatic
     Dosage: (50 MG/M2 Q2W) 91 MG,91 MILLIGRAM EVERY 2 WEEK(S) DOCETAXEL FRESENIUS (50MG/M2 Q2W) 91 MG I.V. EV...
     Route: 042
     Dates: start: 20240223
  5. DOCETAXEL [Suspect]
     Active Substance: DOCETAXEL\DOCETAXEL ANHYDROUS
     Dosage: (50 MG/M2 Q2W) 91 MG,91 MILLIGRAM EVERY 2 WEEK(S) DOCETAXEL FRESENIUS (50MG/M2 Q2W) 91 MG I.V. EV...
     Route: 042
     Dates: start: 20240404
  6. NUBEQA [Suspect]
     Active Substance: DAROLUTAMIDE
     Indication: Product used for unknown indication
     Dosage: 600 MILLIGRAM EVERY 12 HOUR
     Route: 048
     Dates: start: 20231221
  7. DENOSUMAB [Suspect]
     Active Substance: DENOSUMAB
     Indication: Product used for unknown indication
     Dosage: DOSAGE FORM EVERY 4 WEEK(S)
     Route: 058
     Dates: start: 20240321
  8. ENALAPRIL [Suspect]
     Active Substance: ENALAPRIL
     Indication: Product used for unknown indication
     Dosage: 20 MILLIGRAM EVERY 1 DAY(S)
     Route: 048
  9. TAMSULOSIN HYDROCHLORIDE [Suspect]
     Active Substance: TAMSULOSIN HYDROCHLORIDE
     Indication: Product used for unknown indication
     Dosage: 0.4 MILLIGRAM EVERY 1 DAY(S)
     Route: 048
  10. PANTOZOL [Suspect]
     Active Substance: PANTOPRAZOLE SODIUM
     Indication: Product used for unknown indication
     Dosage: 40 MILLIGRAM EVERY 1 DAY(S)
     Route: 048

REACTIONS (1)
  - Lupus-like syndrome [Recovering/Resolving]

NARRATIVE: CASE EVENT DATE: 20240413
